FAERS Safety Report 7537361-0 (Version None)
Quarter: 2011Q2

REPORT INFORMATION
  Report Type: 
  Country: None (occurrence: None)
  Receive Date: 20110603
  Receipt Date: 20110518
  Transmission Date: 20111010
  Serious: Yes (Death, Hospitalization)
  Sender: FDA-Public Use
  Company Number: 2011MA006078

PATIENT
  Age: 89 Year
  Sex: Male

DRUGS (1)
  1. FEVERALL [Suspect]
     Indication: BACK PAIN
     Dosage: 1 G;QID

REACTIONS (10)
  - GENERAL PHYSICAL HEALTH DETERIORATION [None]
  - HYPERNATRAEMIA [None]
  - PROSTATE CANCER METASTATIC [None]
  - POOR VENOUS ACCESS [None]
  - SEPSIS [None]
  - RENAL IMPAIRMENT [None]
  - PRODUCT FORMULATION ISSUE [None]
  - DEHYDRATION [None]
  - HYPOPHAGIA [None]
  - BLOOD POTASSIUM DECREASED [None]
